FAERS Safety Report 6693166-4 (Version None)
Quarter: 2010Q2

REPORT INFORMATION
  Report Type: 
  Country: None (occurrence: None)
  Receive Date: 20100421
  Receipt Date: 20100421
  Transmission Date: 20101027
  Serious: Yes (Other)
  Sender: FDA-Public Use
  Company Number: None

PATIENT
  Age: 42 Year
  Sex: Female
  Weight: 53.5244 kg

DRUGS (1)
  1. BOTOX [Suspect]
     Indication: SKIN WRINKLING
     Dosage: 40 UNITS ONCE A YEAR
     Dates: start: 20090210, end: 20090210

REACTIONS (5)
  - ANXIETY [None]
  - APHASIA [None]
  - BRADYPHRENIA [None]
  - UNEVALUABLE EVENT [None]
  - VISION BLURRED [None]
